FAERS Safety Report 4594966-7 (Version None)
Quarter: 2005Q1

REPORT INFORMATION
  Report Type: 
  Country: None (occurrence: None)
  Receive Date: 20050224
  Receipt Date: 20030818
  Transmission Date: 20050727
  Serious: Yes (Other)
  Sender: FDA-Public Use
  Company Number: GXKR2003GB00635

PATIENT
  Age: 64 Year
  Sex: Female
  Weight: 104 kg

DRUGS (1)
  1. TRIMETHOPRIM [Suspect]
     Indication: URINARY TRACT INFECTION
     Dosage: 200 MG, BID, ORAL
     Route: 048
     Dates: start: 20030111, end: 20030615

REACTIONS (4)
  - GINGIVAL ULCERATION [None]
  - LIP ULCERATION [None]
  - MOUTH ULCERATION [None]
  - PHARYNGEAL ULCERATION [None]
